FAERS Safety Report 24960857 (Version 2)
Quarter: 2025Q2

REPORT INFORMATION
  Report Type: Report from Study
  Country: US (occurrence: US)
  Receive Date: 20250212
  Receipt Date: 20250514
  Transmission Date: 20250716
  Serious: Yes (Other)
  Sender: ALEXION PHARMACEUTICALS
  Company Number: US-AstraZeneca-CH-00804046A

PATIENT

DRUGS (1)
  1. ULTOMIRIS [Suspect]
     Active Substance: RAVULIZUMAB-CWVZ
     Indication: Myasthenia gravis
     Route: 065

REACTIONS (9)
  - Mixed connective tissue disease [Recovering/Resolving]
  - Sjogren^s syndrome [Recovering/Resolving]
  - Gait disturbance [Recovering/Resolving]
  - Diplopia [Not Recovered/Not Resolved]
  - Arthralgia [Recovering/Resolving]
  - Asthenia [Recovering/Resolving]
  - Strabismus [Unknown]
  - Antiacetylcholine receptor antibody positive [Unknown]
  - Dysphemia [Unknown]
